FAERS Safety Report 8001858-X (Version None)
Quarter: 2011Q4

REPORT INFORMATION
  Report Type: 
  Country: None (occurrence: None)
  Receive Date: 20111123
  Receipt Date: 20110926
  Transmission Date: 20120403
  Serious: No
  Sender: FDA-Public Use
  Company Number: 336266

PATIENT
  Sex: Male

DRUGS (3)
  1. LEVEMIR (INSULIN DETERMIR) [Concomitant]
  2. NOVOLOG [Concomitant]
  3. VICTOZA [Suspect]
     Indication: DIABETES MELLITUS
     Dosage: SUBCUTANEOUS
     Route: 058
     Dates: start: 20110924

REACTIONS (2)
  - ABDOMINAL DISTENSION [None]
  - PRURITUS [None]
